FAERS Safety Report 21977041 (Version 4)
Quarter: 2023Q2

REPORT INFORMATION
  Report Type: Spontaneous
  Country: JP (occurrence: JP)
  Receive Date: 20230210
  Receipt Date: 20230622
  Transmission Date: 20230721
  Serious: Yes (Hospitalization, Other)
  Sender: FDA-Public Use
  Company Number: JP-TAKEDA-2022TJP073102

PATIENT
  Age: 52 Year
  Sex: Male
  Weight: 51 kg

DRUGS (11)
  1. TEDUGLUTIDE [Suspect]
     Active Substance: TEDUGLUTIDE
     Indication: Product used for unknown indication
     Dosage: 0.13 MILLILITER, QD
     Route: 058
     Dates: start: 20220824, end: 20230208
  2. TEDUGLUTIDE [Suspect]
     Active Substance: TEDUGLUTIDE
     Indication: Product used for unknown indication
     Dosage: 0.13 MILLILITER, QD
     Route: 058
     Dates: start: 20220824, end: 20230208
  3. TEDUGLUTIDE [Suspect]
     Active Substance: TEDUGLUTIDE
     Indication: Product used for unknown indication
     Dosage: 0.13 MILLILITER, QD
     Route: 058
     Dates: start: 20220824, end: 20230208
  4. TEDUGLUTIDE [Suspect]
     Active Substance: TEDUGLUTIDE
     Indication: Product used for unknown indication
     Dosage: 0.13 MILLILITER, QD
     Route: 058
     Dates: start: 20220824, end: 20230208
  5. HUMIRA [Concomitant]
     Active Substance: ADALIMUMAB
     Indication: Crohn^s disease
     Dosage: 40 MILLIGRAM, Q2WEEKS
     Route: 058
     Dates: start: 20210510
  6. HUMIRA [Concomitant]
     Active Substance: ADALIMUMAB
     Dosage: 80 MILLIGRAM, Q2WEEKS
     Route: 058
     Dates: start: 20210516, end: 20230212
  7. AZATHIOPRINE [Concomitant]
     Active Substance: AZATHIOPRINE
     Indication: Crohn^s disease
     Dosage: 25 MILLIGRAM, QD
     Route: 048
     Dates: start: 20230106, end: 20230123
  8. AZATHIOPRINE [Concomitant]
     Active Substance: AZATHIOPRINE
     Dosage: 50 MILLIGRAM, QD
     Route: 048
     Dates: start: 20230124
  9. CYMBALTA [Concomitant]
     Active Substance: DULOXETINE HYDROCHLORIDE
     Dosage: 20 MILLIGRAM, QD
     Route: 048
     Dates: start: 20211129
  10. LOPEMIN [Concomitant]
     Indication: Crohn^s disease
     Dosage: 2 MILLIGRAM, BID
     Route: 048
  11. AMINO ACIDS\DEXTROSE\ELECTROLYTES NOS\MINERALS\VITAMINS [Concomitant]
     Active Substance: AMINO ACIDS\DEXTROSE\ELECTROLYTES NOS\MINERALS\VITAMINS
     Dosage: 1000 MILLILITER
     Route: 042
     Dates: start: 20220105

REACTIONS (4)
  - Rectal cancer [Unknown]
  - Oedema [Recovered/Resolved]
  - Weight increased [Recovered/Resolved]
  - Arthritis enteropathic [Unknown]

NARRATIVE: CASE EVENT DATE: 20220902
